FAERS Safety Report 6883507-7 (Version None)
Quarter: 2010Q3

REPORT INFORMATION
  Report Type: 
  Country: None (occurrence: None)
  Receive Date: 20100727
  Receipt Date: 20100714
  Transmission Date: 20110219
  Serious: Yes (Hospitalization)
  Sender: FDA-Public Use
  Company Number: 2010BI010752

PATIENT
  Age: 61 Year
  Sex: Female

DRUGS (9)
  1. ZEVALIN [Suspect]
     Indication: FOLLICLE CENTRE LYMPHOMA, FOLLICULAR GRADE I, II, III STAGE III
     Dosage: 511 MBQ; 1X; IV
     Route: 042
     Dates: start: 20091209, end: 20091216
  2. RITUXIMAB [Concomitant]
  3. COTRIM [Concomitant]
  4. ZYLORIC [Concomitant]
  5. GASTER D [Concomitant]
  6. OTHER ANALYGESICS AND ANTIPYRETICS [Concomitant]
  7. ANTIHISTAMINES [Concomitant]
  8. MAGMITT [Concomitant]
  9. DEXAMETHASONE [Concomitant]

REACTIONS (5)
  - HAEMATOTOXICITY [None]
  - LEUKOPENIA [None]
  - NEUTROPENIA [None]
  - THROMBOCYTOPENIA [None]
  - UPPER RESPIRATORY TRACT INFLAMMATION [None]
